FAERS Safety Report 16942888 (Version 3)
Quarter: 2019Q4

REPORT INFORMATION
  Report Type: Spontaneous
  Country: US (occurrence: US)
  Receive Date: 20191021
  Receipt Date: 20191125
  Transmission Date: 20200122
  Serious: Yes (Other)
  Sender: FDA-Public Use
  Company Number: US-ALLERGAN-1941410US

PATIENT
  Sex: Female

DRUGS (4)
  1. VIIBRYD [Suspect]
     Active Substance: VILAZODONE HYDROCHLORIDE
     Indication: DEPRESSION
     Dosage: 40 MG, QD
     Dates: start: 2015, end: 201903
  2. VIIBRYD [Suspect]
     Active Substance: VILAZODONE HYDROCHLORIDE
     Indication: ANXIETY
  3. SPRYCEL [Concomitant]
     Active Substance: DASATINIB
     Indication: LEUKAEMIA
  4. LEVOTHYROXINE. [Concomitant]
     Active Substance: LEVOTHYROXINE
     Indication: BASEDOW^S DISEASE

REACTIONS (11)
  - Suicidal behaviour [Recovered/Resolved]
  - Gastrointestinal haemorrhage [Recovered/Resolved]
  - Leukaemia [Not Recovered/Not Resolved]
  - Impaired work ability [Recovered/Resolved]
  - Withdrawal syndrome [Recovered/Resolved]
  - Contraindicated product administered [Unknown]
  - Patient dissatisfaction with treatment [Unknown]
  - Nausea [Recovered/Resolved]
  - Paraesthesia [Recovered/Resolved]
  - Product use in unapproved indication [Unknown]
  - Dizziness [Recovered/Resolved]

NARRATIVE: CASE EVENT DATE: 201903
